FAERS Safety Report 21212809 (Version 1)
Quarter: 2022Q3

REPORT INFORMATION
  Report Type: Spontaneous
  Country: US (occurrence: US)
  Receive Date: 20220815
  Receipt Date: 20220815
  Transmission Date: 20221027
  Serious: No
  Sender: FDA-Public Use
  Company Number: US-PFIZER INC-PV202200042228

PATIENT
  Age: 6 Decade
  Sex: Male

DRUGS (2)
  1. CIBINQO [Suspect]
     Active Substance: ABROCITINIB
     Dosage: 100 MG
  2. CIBINQO [Suspect]
     Active Substance: ABROCITINIB
     Dosage: 50 MG

REACTIONS (1)
  - Hepatic enzyme increased [Recovering/Resolving]
